FAERS Safety Report 23837166 (Version 1)
Quarter: 2024Q2

REPORT INFORMATION
  Report Type: Spontaneous
  Country: US (occurrence: US)
  Receive Date: 20240509
  Receipt Date: 20240509
  Transmission Date: 20240715
  Serious: Yes (Hospitalization, Other)
  Sender: FDA-Public Use
  Company Number: US-ABBOTT-11P-163-0729755-00

PATIENT
  Age: 63 Year
  Sex: Male
  Weight: 74.456 kg

DRUGS (29)
  1. VANCOMYCIN HYDROCHLORIDE [Suspect]
     Active Substance: VANCOMYCIN HYDROCHLORIDE
     Indication: Staphylococcal infection
     Dosage: 2 G (NUMBER OF UNITS IN THE INTERVAL: 4; DEFINITION OF THE TIME INTERVAL UNIT: HOUR)
     Dates: start: 201001, end: 201002
  2. VANCOMYCIN HYDROCHLORIDE [Suspect]
     Active Substance: VANCOMYCIN HYDROCHLORIDE
     Indication: Osteomyelitis
     Dosage: UNK
     Dates: start: 201003, end: 201003
  3. VANCOMYCIN HYDROCHLORIDE [Suspect]
     Active Substance: VANCOMYCIN HYDROCHLORIDE
     Indication: Intervertebral discitis
     Dosage: RX WITH 8 WEEKS
     Route: 042
  4. DOXYCYCLINE HYCLATE [Suspect]
     Active Substance: DOXYCYCLINE HYCLATE
     Indication: Staphylococcal infection
     Dosage: UNK
     Route: 048
     Dates: start: 201003, end: 201008
  5. DOXYCYCLINE HYCLATE [Suspect]
     Active Substance: DOXYCYCLINE HYCLATE
     Indication: Osteomyelitis
  6. DOXYCYCLINE HYCLATE [Suspect]
     Active Substance: DOXYCYCLINE HYCLATE
     Indication: Intervertebral discitis
  7. HUMIRA [Suspect]
     Active Substance: ADALIMUMAB
     Indication: Psoriatic arthropathy
     Dosage: 40 MG, 2X/WEEK (40 MG/0.8 ML)
     Route: 058
     Dates: start: 200710, end: 201001
  8. METHOTREXATE [Concomitant]
     Active Substance: METHOTREXATE
     Indication: Psoriatic arthropathy
     Dosage: UNK
     Dates: start: 201105
  9. INSULIN NOS [Concomitant]
     Active Substance: INSULIN NOS
     Dosage: UNK
  10. ENALAPRIL [Concomitant]
     Active Substance: ENALAPRIL
     Dosage: UNK
  11. CRESTOR [Concomitant]
     Active Substance: ROSUVASTATIN CALCIUM
     Dosage: 10 MG, 1X/DAY
  12. POTASSIUM [Concomitant]
     Active Substance: POTASSIUM
     Dosage: UNK
  13. VICODIN [Concomitant]
     Active Substance: ACETAMINOPHEN\HYDROCODONE BITARTRATE
     Dosage: UNK
  14. ADVIL 12H [Concomitant]
     Dosage: UNK
  15. ZANTAC [Concomitant]
     Active Substance: RANITIDINE HYDROCHLORIDE
     Dosage: UNK
  16. BETA CAROTENE [Concomitant]
     Active Substance: BETA CAROTENE
     Dosage: UNK
  17. MELOXICAM [Concomitant]
     Active Substance: MELOXICAM
     Dosage: UNK
  18. RAMIPRIL [Concomitant]
     Active Substance: RAMIPRIL
     Dosage: 5 MG, 1X/DAY
  19. COENZYME Q10 AND SODIUM CHLORIDE [Concomitant]
     Dosage: UNK
  20. PSEUDOEPHEDRINE HYDROCHLORIDE [Concomitant]
     Active Substance: PSEUDOEPHEDRINE HYDROCHLORIDE
     Dosage: UNK
  21. IBUPROFEN [Concomitant]
     Active Substance: IBUPROFEN
     Dosage: UNK
  22. HYDROCODONE BITARTRATE [Concomitant]
     Active Substance: HYDROCODONE BITARTRATE
     Dosage: UNK
  23. ACETAMINOPHEN [Concomitant]
     Active Substance: ACETAMINOPHEN
     Dosage: UNK
  24. POTASSIUM CHLORIDE [Concomitant]
     Active Substance: POTASSIUM CHLORIDE
     Dosage: UNK
  25. POTASSIUM GLYCEROPHOSPHATE [Concomitant]
     Active Substance: POTASSIUM GLYCEROPHOSPHATE ANHYDROUS
     Dosage: UNK
  26. POTASSIUM BICARBONATE [Concomitant]
     Active Substance: POTASSIUM BICARBONATE
     Dosage: UNK
  27. POTASSIUM HYDROGEN TARTRATE [Concomitant]
     Dosage: UNK
  28. RANITIDINE HYDROCHLORIDE [Concomitant]
     Active Substance: RANITIDINE HYDROCHLORIDE
     Dosage: UNK
  29. ROSUVASTATIN [Concomitant]
     Active Substance: ROSUVASTATIN
     Dosage: UNK

REACTIONS (28)
  - Spinal pain [Recovering/Resolving]
  - Intervertebral disc protrusion [Recovering/Resolving]
  - Clostridium difficile infection [Recovered/Resolved]
  - Diarrhoea [Recovered/Resolved]
  - Chills [Recovered/Resolved]
  - Psoriatic arthropathy [Recovering/Resolving]
  - Red blood cell sedimentation rate increased [Recovered/Resolved]
  - C-reactive protein increased [Recovered/Resolved]
  - Abdominal discomfort [Unknown]
  - Paraesthesia [Unknown]
  - Sunburn [Unknown]
  - Night sweats [Unknown]
  - Pain in extremity [Unknown]
  - Depression [Unknown]
  - Gait disturbance [Unknown]
  - Spinal instability [Unknown]
  - Hypertension [Unknown]
  - Hyperlipidaemia [Unknown]
  - Abdominal pain [Unknown]
  - Dizziness [Unknown]
  - Nausea [Unknown]
  - Vomiting [Unknown]
  - Dysstasia [Unknown]
  - Arthralgia [Unknown]
  - Hand deformity [Unknown]
  - Back pain [Recovered/Resolved]
  - Pyrexia [Unknown]
  - Hypoaesthesia [Unknown]

NARRATIVE: CASE EVENT DATE: 20100101
